FAERS Safety Report 18712571 (Version 1)
Quarter: 2021Q1

REPORT INFORMATION
  Report Type: Spontaneous
  Country: US (occurrence: US)
  Receive Date: 20210107
  Receipt Date: 20210107
  Transmission Date: 20210419
  Serious: No
  Sender: FDA-Public Use
  Company Number: US-TEVA-2020-US-1862854

PATIENT
  Sex: Male

DRUGS (2)
  1. VITAMIN B?12 1000 MCG TABLET [Concomitant]
     Route: 065
  2. AUSTEDO [Suspect]
     Active Substance: DEUTETRABENAZINE
     Indication: HUNTINGTON^S DISEASE
     Dosage: 7 DOSAGE FORMS DAILY; TAKE 4 TABLETS EVERY MORNING AND 3 TABLETS EVERY EVENING
     Route: 065
     Dates: start: 201910

REACTIONS (1)
  - Dehydration [Not Recovered/Not Resolved]
